FAERS Safety Report 18864609 (Version 2)
Quarter: 2021Q1

REPORT INFORMATION
  Report Type: Report from Study
  Country: US (occurrence: US)
  Receive Date: 20210209
  Receipt Date: 20210308
  Transmission Date: 20210420
  Serious: Yes (Hospitalization)
  Sender: FDA-Public Use
  Company Number: US-INSMED, INC.-US-INS-20-00722

PATIENT
  Age: 73 Year
  Sex: Female

DRUGS (4)
  1. ARIKAYCE [Suspect]
     Active Substance: AMIKACIN
     Indication: PRODUCT USED FOR UNKNOWN INDICATION
     Dosage: 590 MILLIGRAM
     Route: 055
     Dates: start: 20200316, end: 20200327
  2. ARIKAYCE [Suspect]
     Active Substance: AMIKACIN
     Dosage: UNK
     Route: 055
     Dates: start: 2020, end: 20200402
  3. ARIKAYCE [Suspect]
     Active Substance: AMIKACIN
     Dosage: 590 MILLIGRAM
     Route: 055
     Dates: start: 2020, end: 2020
  4. ARIKAYCE [Suspect]
     Active Substance: AMIKACIN
     Dosage: 590 MILLIGRAM
     Route: 055
     Dates: start: 202006, end: 2021

REACTIONS (11)
  - White blood cell count decreased [Unknown]
  - Hospice care [Unknown]
  - Aphonia [Recovered/Resolved]
  - Product dose omission issue [Unknown]
  - Device issue [Unknown]
  - Hospitalisation [Unknown]
  - Febrile neutropenia [Unknown]
  - Aphonia [Not Recovered/Not Resolved]
  - Dyspnoea [Unknown]
  - Dysphonia [Unknown]
  - Haemoptysis [Not Recovered/Not Resolved]

NARRATIVE: CASE EVENT DATE: 2020
